FAERS Safety Report 6984872-2 (Version None)
Quarter: 2010Q3

REPORT INFORMATION
  Report Type: 
  Country: None (occurrence: None)
  Receive Date: 20100913
  Receipt Date: 20100827
  Transmission Date: 20110219
  Serious: Yes (Hospitalization)
  Sender: FDA-Public Use
  Company Number: TPA2010A04711

PATIENT
  Age: 39 Year
  Sex: Male

DRUGS (4)
  1. ROZEREM [Suspect]
     Dates: start: 20071001
  2. FLUVOXAMINE MALEATE [Suspect]
     Indication: GENERALISED ANXIETY DISORDER
     Dosage: 200 MG, 1 IN 1 D, ORAL
     Route: 048
     Dates: start: 20070101, end: 20071101
  3. FLUVOXAMINE MALEATE [Suspect]
     Indication: OBSESSIVE-COMPULSIVE DISORDER
     Dosage: 200 MG, 1 IN 1 D, ORAL
     Route: 048
     Dates: start: 20070101, end: 20071101
  4. WELLBUTRIN [Concomitant]

REACTIONS (4)
  - CLONUS [None]
  - DELIRIUM [None]
  - DRUG INTERACTION [None]
  - SEROTONIN SYNDROME [None]
